FAERS Safety Report 9206976 (Version 1)
Quarter: 2013Q2

REPORT INFORMATION
  Report Type: Spontaneous
  Country: US (occurrence: US)
  Receive Date: 20130403
  Receipt Date: 20130403
  Transmission Date: 20140414
  Serious: No
  Sender: FDA-Public Use
  Company Number: US-BAYER-2013-042030

PATIENT
  Age: 75 Year
  Sex: Female
  Weight: 80.73 kg

DRUGS (1)
  1. ALEVE GELCAPS [Suspect]
     Indication: HEADACHE
     Dosage: 2 DF, ONCE
     Route: 048
     Dates: start: 20130326, end: 20130326

REACTIONS (1)
  - Drug ineffective [None]
